FAERS Safety Report 25418687 (Version 1)
Quarter: 2025Q2

REPORT INFORMATION
  Report Type: Report from Study
  Country: IN (occurrence: IN)
  Receive Date: 20250610
  Receipt Date: 20250610
  Transmission Date: 20250717
  Serious: Yes (Other)
  Sender: NOVARTIS
  Company Number: IN-002147023-NVSC2025IN092485

PATIENT
  Age: 62 Year
  Sex: Female

DRUGS (1)
  1. RIBOCICLIB [Suspect]
     Active Substance: RIBOCICLIB
     Indication: Breast cancer metastatic
     Dosage: 600 MG, QD
     Route: 048
     Dates: start: 20241120

REACTIONS (15)
  - Electrocardiogram QT interval abnormal [Unknown]
  - Blood triglycerides abnormal [Unknown]
  - Blood cholesterol abnormal [Unknown]
  - Glycosylated haemoglobin abnormal [Unknown]
  - Blood creatine abnormal [Unknown]
  - Vitamin D abnormal [Unknown]
  - White blood cell count abnormal [Unknown]
  - Neutrophil count abnormal [Unknown]
  - Positron emission tomogram abnormal [Unknown]
  - Platelet count abnormal [Unknown]
  - Blood thyroid stimulating hormone abnormal [Unknown]
  - Haemoglobin abnormal [Unknown]
  - Tri-iodothyronine abnormal [Unknown]
  - Thyroxine abnormal [Unknown]
  - Bone density decreased [Unknown]

NARRATIVE: CASE EVENT DATE: 20241130
